FAERS Safety Report 9373011 (Version 1)
Quarter: 2013Q2

REPORT INFORMATION
  Report Type: Report from Study
  Country: CA (occurrence: CA)
  Receive Date: 20130627
  Receipt Date: 20130627
  Transmission Date: 20140414
  Serious: Yes (Hospitalization, Other)
  Sender: FDA-Public Use
  Company Number: CA-ABBOTT-08P-028-0440283-00

PATIENT
  Age: 51 Year
  Sex: Female
  Weight: 65.38 kg

DRUGS (14)
  1. HUMIRA 40 MG/ 0.8 ML PRE-FILLED SYRINGE [Suspect]
     Indication: RHEUMATOID ARTHRITIS
     Route: 058
     Dates: start: 200607, end: 20080220
  2. METHOTREXATE [Suspect]
     Indication: PRODUCT USED FOR UNKNOWN INDICATION
     Dates: start: 200610, end: 20080220
  3. ARTHROTEC [Concomitant]
     Indication: PRODUCT USED FOR UNKNOWN INDICATION
     Route: 048
  4. FOLIC ACID [Concomitant]
     Indication: PRODUCT USED FOR UNKNOWN INDICATION
     Route: 048
  5. FOSAMAX [Concomitant]
     Indication: PRODUCT USED FOR UNKNOWN INDICATION
     Route: 050
  6. IRON [Concomitant]
     Indication: PRODUCT USED FOR UNKNOWN INDICATION
  7. LIPITOR [Concomitant]
     Indication: PRODUCT USED FOR UNKNOWN INDICATION
     Route: 048
  8. PLAQUENIL [Concomitant]
     Indication: PRODUCT USED FOR UNKNOWN INDICATION
     Route: 048
  9. PREDNISONE [Concomitant]
     Indication: PRODUCT USED FOR UNKNOWN INDICATION
     Route: 048
  10. RANITIDINE [Concomitant]
     Indication: PRODUCT USED FOR UNKNOWN INDICATION
     Route: 048
  11. SULFASALAZINE [Concomitant]
     Indication: PRODUCT USED FOR UNKNOWN INDICATION
     Route: 048
  12. TNF-ALPHA INHIBITOR [Concomitant]
     Indication: PRODUCT USED FOR UNKNOWN INDICATION
  13. XYLOCAINE [Concomitant]
     Indication: PRODUCT USED FOR UNKNOWN INDICATION
     Dosage: 1%
     Dates: start: 20080308, end: 20080308
  14. EPINEPHRINE [Concomitant]
     Indication: PRODUCT USED FOR UNKNOWN INDICATION
     Dosage: 1:100,000
     Dates: start: 20080308, end: 20080308

REACTIONS (11)
  - Non-Hodgkin^s lymphoma [Unknown]
  - Diffuse large B-cell lymphoma [Not Recovered/Not Resolved]
  - Lymphadenopathy [Unknown]
  - Granulocytes abnormal [Unknown]
  - Megakaryocytes increased [Unknown]
  - Anaemia [Unknown]
  - Blood iron decreased [Unknown]
  - Reticulocytosis [Unknown]
  - Lymphoproliferative disorder [Unknown]
  - Drug therapy [Unknown]
  - Streptococcal abscess [Unknown]
